FAERS Safety Report 22520470 (Version 1)
Quarter: 2023Q2

REPORT INFORMATION
  Report Type: Spontaneous
  Country: US (occurrence: US)
  Receive Date: 20230605
  Receipt Date: 20230605
  Transmission Date: 20230721
  Serious: Yes (Hospitalization)
  Sender: FDA-Public Use
  Company Number: US-PFIZER INC-PV202300097929

PATIENT
  Age: 70 Year
  Sex: Female

DRUGS (1)
  1. IBRANCE [Suspect]
     Active Substance: PALBOCICLIB
     Indication: Neoplasm malignant
     Dosage: 100 MG

REACTIONS (7)
  - Vomiting [Unknown]
  - Blood potassium decreased [Unknown]
  - Neoplasm progression [Unknown]
  - Arthropathy [Unknown]
  - Bone disorder [Unknown]
  - Cholelithiasis [Unknown]
  - Bone density decreased [Unknown]
